FAERS Safety Report 8981596 (Version 2)
Quarter: 2013Q1

REPORT INFORMATION
  Report Type: Spontaneous
  Country: FR (occurrence: FR)
  Receive Date: 20121223
  Receipt Date: 20130124
  Transmission Date: 20140127
  Serious: Yes (Other)
  Sender: FDA-Public Use
  Company Number: FR-JNJFOC-20121206393

PATIENT
  Age: 16 Year
  Sex: Female

DRUGS (2)
  1. REMICADE [Suspect]
     Indication: CROHN^S DISEASE
     Dosage: AFTER 14 COURSES OF TREATMENT I.E. 50 WEEKS OF TREATMENT, THE PATIENT PRESENTED WITH SYMPTOMS
     Route: 042
     Dates: start: 2008
  2. AZATHIOPRINE [Concomitant]
     Route: 065

REACTIONS (3)
  - Polyarteritis nodosa [Recovering/Resolving]
  - Dry eye [Unknown]
  - Dry mouth [Unknown]
